FAERS Safety Report 14356202 (Version 4)
Quarter: 2018Q1

REPORT INFORMATION
  Report Type: Spontaneous
  Country: US (occurrence: US)
  Receive Date: 20180105
  Receipt Date: 20180228
  Transmission Date: 20180509
  Serious: No
  Sender: FDA-Public Use
  Company Number: US-LUNDBECK-DKLU2041432

PATIENT
  Age: 46 Year
  Sex: Female

DRUGS (2)
  1. NORTHERA [Suspect]
     Active Substance: DROXIDOPA
     Dosage: SCHEDULE C- FIXED DOSE
     Route: 048
     Dates: start: 20171210
  2. NORTHERA [Suspect]
     Active Substance: DROXIDOPA
     Indication: ORTHOSTATIC HYPOTENSION
     Route: 048
     Dates: start: 201711

REACTIONS (3)
  - Skin disorder [Unknown]
  - Pain of skin [Unknown]
  - Migraine [Unknown]

NARRATIVE: CASE EVENT DATE: 201711
